FAERS Safety Report 7444953-6 (Version None)
Quarter: 2011Q2

REPORT INFORMATION
  Report Type: 
  Country: None (occurrence: None)
  Receive Date: 20110427
  Receipt Date: 20110427
  Transmission Date: 20111010
  Serious: Yes (Other)
  Sender: FDA-Public Use
  Company Number: None

PATIENT
  Sex: Female
  Weight: 67.1324 kg

DRUGS (1)
  1. CIPROFLOXACIN [Suspect]
     Indication: INFECTION PROPHYLAXIS
     Dosage: 500MG SWALLOW ONE PILL 2 X PER DAY PO
     Route: 048
     Dates: start: 20110418, end: 20110422

REACTIONS (13)
  - HEADACHE [None]
  - ASTHENIA [None]
  - DEPRESSION [None]
  - MYALGIA [None]
  - ARTHRALGIA [None]
  - OEDEMA PERIPHERAL [None]
  - RASH PRURITIC [None]
  - APATHY [None]
  - INSOMNIA [None]
  - DIARRHOEA [None]
  - GINGIVAL OEDEMA [None]
  - SUICIDAL IDEATION [None]
  - WEIGHT INCREASED [None]
